FAERS Safety Report 9618588 (Version 2)
Quarter: 2013Q4

REPORT INFORMATION
  Report Type: Spontaneous
  Country: US (occurrence: US)
  Receive Date: 20131014
  Receipt Date: 20131205
  Transmission Date: 20140711
  Serious: No
  Sender: FDA-Public Use
  Company Number: US-PFIZER INC-2013293910

PATIENT
  Age: 81 Year
  Sex: Female
  Weight: 60.77 kg

DRUGS (21)
  1. AMIODARONE HCL [Suspect]
     Indication: ATRIAL FIBRILLATION
     Dosage: 200 MG, 1X/DAY
  2. XELJANZ [Interacting]
     Indication: RHEUMATOID ARTHRITIS
     Dosage: 5 MG, 2X/DAY
     Route: 048
     Dates: start: 20131009, end: 20131010
  3. CORDRAN [Concomitant]
     Dosage: UNK
  4. WARFARIN [Concomitant]
     Dosage: UNK
  5. COUMADIN [Concomitant]
     Dosage: UNK
  6. LOSARTAN [Concomitant]
     Dosage: UNK
  7. PROTONIX [Concomitant]
     Dosage: UNK
  8. CALCIUM [Concomitant]
     Dosage: UNK
  9. PREDNISONE [Concomitant]
     Dosage: 2.5 MG, DAILY
  10. POTASSIUM [Concomitant]
     Dosage: UNK
  11. TYLENOL [Concomitant]
     Dosage: 325 MG, AS NEEDED (EVERY 6 HOURS)
  12. AMBIEN [Concomitant]
     Dosage: 10 MG, AS NEEDED (AT BEDTIME ONCE A DAY)
  13. ALPRAZOLAM [Concomitant]
     Dosage: 1 MG, 2X/DAY
  14. OMEPRAZOLE [Concomitant]
     Dosage: 20 MG, 1X/DAY
     Route: 048
  15. TRIAMTERENE-HCTZ [Concomitant]
     Dosage: 37.5 MG/ 25 MG, EVERY OTHER DAY
  16. KLOR-CON [Concomitant]
     Dosage: 10 MEQ, 1X/DAY
  17. LEVOTHYROXINE SODIUM [Concomitant]
     Dosage: 112 UG, 1X/DAY
  18. LOSARTAN POTASSIUM [Concomitant]
     Dosage: 100 MG, 1X/DAY
  19. DILTIAZEM HCL [Concomitant]
     Dosage: 138 MG, 1X/DAY (1 CAPSULE ON AN EMPTY STOMACH IN THE MORNING)
  20. PANTOPRAZOLE SODIUM [Concomitant]
     Dosage: 40 MG, 1X/DAY
  21. VOLTAREN [Concomitant]
     Indication: OSTEOARTHRITIS
     Dosage: UNK

REACTIONS (8)
  - Drug interaction [Unknown]
  - Palpitations [Recovered/Resolved]
  - Pyrexia [Recovering/Resolving]
  - Chills [Recovering/Resolving]
  - Herpes zoster [Unknown]
  - Post herpetic neuralgia [Unknown]
  - Psoriasis [Unknown]
  - Fatigue [Unknown]
